FAERS Safety Report 9079124 (Version 1)
Quarter: 2013Q1

REPORT INFORMATION
  Report Type: Spontaneous
  Country: US (occurrence: US)
  Receive Date: 20130130
  Receipt Date: 20130130
  Transmission Date: 20140127
  Serious: Yes (Death)
  Sender: FDA-Public Use
  Company Number: US-ROCHE-1182572

PATIENT
  Sex: Female

DRUGS (2)
  1. XELODA [Suspect]
     Indication: PRODUCT USED FOR UNKNOWN INDICATION
     Route: 065
  2. DEXAMETHASONE [Interacting]
     Indication: INFLAMMATION
     Route: 065

REACTIONS (3)
  - Death [Fatal]
  - Drug interaction [Fatal]
  - Palmar-plantar erythrodysaesthesia syndrome [Unknown]
